FAERS Safety Report 23883021 (Version 2)
Quarter: 2024Q2

REPORT INFORMATION
  Report Type: Spontaneous
  Country: JP (occurrence: JP)
  Receive Date: 20240522
  Receipt Date: 20240607
  Transmission Date: 20240716
  Serious: Yes (Death, Hospitalization, Other)
  Sender: FDA-Public Use
  Company Number: JP-JNJFOC-20240555276

PATIENT
  Age: 73 Year
  Sex: Female
  Weight: 45.4 kg

DRUGS (4)
  1. VELCADE [Suspect]
     Active Substance: BORTEZOMIB
     Indication: Renal amyloidosis
     Dosage: 1.7 MILLIGRAM
     Route: 065
     Dates: start: 20240116, end: 20240305
  2. DEXAMETHASONE [Suspect]
     Active Substance: DEXAMETHASONE
     Indication: Renal amyloidosis
     Dosage: 20 MILLIGRAM
     Route: 065
     Dates: start: 20240116, end: 20240305
  3. DARATUMUMAB [Suspect]
     Active Substance: DARATUMUMAB
     Indication: Renal amyloidosis
     Dosage: 1800 MILLIGRAM
     Route: 058
     Dates: start: 20240116, end: 20240305
  4. CYCLOPHOSPHAMIDE [Suspect]
     Active Substance: CYCLOPHOSPHAMIDE
     Indication: Renal amyloidosis
     Dosage: 400 MILLIGRAM
     Route: 065
     Dates: start: 20240116, end: 20240227

REACTIONS (3)
  - Multiple organ dysfunction syndrome [Fatal]
  - Malaise [Unknown]
  - Pain [Unknown]

NARRATIVE: CASE EVENT DATE: 20240301
